FAERS Safety Report 4748070-5 (Version None)
Quarter: 2005Q3

REPORT INFORMATION
  Report Type: 
  Country: None (occurrence: None)
  Receive Date: 20050818
  Receipt Date: 20050811
  Transmission Date: 20060218
  Serious: Yes (Other)
  Sender: FDA-Public Use
  Company Number: GB-GLAXOSMITHKLINE-B0390521A

PATIENT
  Age: 34 Year
  Sex: Female
  Weight: 59 kg

DRUGS (5)
  1. SERETIDE [Suspect]
     Indication: ASTHMA
     Dosage: 2PUFF TWICE PER DAY
     Dates: end: 20050101
  2. SEPTRIN [Concomitant]
     Indication: BRONCHITIS
     Dosage: 48MG TWICE PER DAY
     Route: 048
     Dates: start: 20040201, end: 20050701
  3. VENLAFAXINE [Concomitant]
     Indication: DEPRESSION
     Dosage: 150MG TWICE PER DAY
     Route: 048
     Dates: start: 20020101
  4. COLOMYCIN [Concomitant]
     Indication: BRONCHITIS
     Dates: start: 20040301, end: 20040401
  5. AMOXICILLIN [Concomitant]
     Indication: BRONCHITIS
     Dosage: 500MG TWICE PER DAY
     Dates: start: 20020701, end: 20040301

REACTIONS (1)
  - ADRENOCORTICAL INSUFFICIENCY CHRONIC [None]
